FAERS Safety Report 13118559 (Version 1)
Quarter: 2017Q1

REPORT INFORMATION
  Report Type: Spontaneous
  Country: US (occurrence: US)
  Receive Date: 20170116
  Receipt Date: 20170116
  Transmission Date: 20170428
  Serious: Yes (Other)
  Sender: FDA-Public Use
  Company Number: PHEH2017US000758

PATIENT
  Sex: Male
  Weight: 115.19 kg

DRUGS (1)
  1. VOTRIENT [Suspect]
     Active Substance: PAZOPANIB HYDROCHLORIDE
     Indication: RENAL CELL CARCINOMA
     Dosage: 600 MG, QD
     Route: 048
     Dates: start: 20160526

REACTIONS (6)
  - Hair colour changes [Unknown]
  - Visual impairment [Unknown]
  - Nausea [Unknown]
  - Cataract [Unknown]
  - Dysgeusia [Unknown]
  - Decreased appetite [Unknown]
